FAERS Safety Report 25154273 (Version 1)
Quarter: 2025Q2

REPORT INFORMATION
  Report Type: Report from Study
  Country: US (occurrence: US)
  Receive Date: 20250403
  Receipt Date: 20250403
  Transmission Date: 20250716
  Serious: Yes (Death, Other)
  Sender: TAKEDA
  Company Number: US-TAKEDA-2024TUS004963

PATIENT
  Age: 72 Year
  Sex: Male

DRUGS (7)
  1. FRUQUINTINIB [Suspect]
     Active Substance: FRUQUINTINIB
     Indication: Colon cancer
     Dosage: 5 MILLIGRAM, QD
     Dates: start: 20231216
  2. FRUQUINTINIB [Suspect]
     Active Substance: FRUQUINTINIB
  3. FRUQUINTINIB [Suspect]
     Active Substance: FRUQUINTINIB
     Dosage: 1 MILLIGRAM, 1/WEEK
     Dates: start: 20231219, end: 20240617
  4. LIDOCAINE [Concomitant]
     Active Substance: LIDOCAINE
  5. METHOCARBAMOL [Concomitant]
     Active Substance: METHOCARBAMOL
  6. NORCO [Concomitant]
     Active Substance: ACETAMINOPHEN\HYDROCODONE BITARTRATE
  7. VOLTAREN [Concomitant]
     Active Substance: DICLOFENAC SODIUM

REACTIONS (8)
  - Death [Fatal]
  - Drug ineffective [Unknown]
  - Abdominal discomfort [Unknown]
  - Peripheral coldness [Not Recovered/Not Resolved]
  - Somnolence [Unknown]
  - Thyroid disorder [Unknown]
  - Diarrhoea [Not Recovered/Not Resolved]
  - Fatigue [Not Recovered/Not Resolved]

NARRATIVE: CASE EVENT DATE: 20231216
